FAERS Safety Report 8319700-6 (Version None)
Quarter: 2012Q2

REPORT INFORMATION
  Report Type: 
  Country: None (occurrence: None)
  Receive Date: 20120427
  Receipt Date: 20120419
  Transmission Date: 20120825
  Serious: Yes (Other)
  Sender: FDA-Public Use
  Company Number: US-ASTRAZENECA-2012SE26070

PATIENT
  Age: 60 Year
  Sex: Female

DRUGS (3)
  1. OMEPRAZOLE [Concomitant]
  2. PREDNISONE [Concomitant]
  3. NEXIUM [Suspect]
     Route: 048

REACTIONS (4)
  - THYROID DISORDER [None]
  - HERPES SIMPLEX [None]
  - NEOPLASM MALIGNANT [None]
  - IMMUNODEFICIENCY [None]
